FAERS Safety Report 16543734 (Version 1)
Quarter: 2019Q3

REPORT INFORMATION
  Report Type: Spontaneous
  Country: US (occurrence: US)
  Receive Date: 20190709
  Receipt Date: 20190709
  Transmission Date: 20191004
  Serious: Yes (Other)
  Sender: FDA-Public Use
  Company Number: US-BAYER-2019-126068

PATIENT

DRUGS (3)
  1. STATIN [ULINASTATIN] [Concomitant]
     Dosage: UNK
  2. ACETYLSALICYLIC ACID (CARDIO) [Suspect]
     Active Substance: ASPIRIN
     Dosage: UNK UNK, QD
  3. APIXABAN [Concomitant]
     Active Substance: APIXABAN
     Dosage: 2 DF, QD

REACTIONS (1)
  - Cerebrovascular accident [None]
